FAERS Safety Report 4495127-2 (Version None)
Quarter: 2004Q4

REPORT INFORMATION
  Report Type: 
  Country: None (occurrence: None)
  Receive Date: 20041103
  Receipt Date: 20040827
  Transmission Date: 20050328
  Serious: Yes (Other)
  Sender: FDA-Public Use
  Company Number: WAES 0404GBR00065

PATIENT
  Age: 81 Year
  Sex: Male

DRUGS (9)
  1. COZARR                (LOSARTAN POTASSIUM) [Suspect]
     Indication: CARDIAC FAILURE
     Dosage: PO
     Route: 048
     Dates: start: 20030806, end: 20040301
  2. COZARR                (LOSARTAN POTASSIUM) [Suspect]
     Indication: CARDIAC FAILURE
     Dosage: PO
     Route: 048
     Dates: start: 20040301, end: 20040406
  3. COZARR                (LOSARTAN POTASSIUM) [Suspect]
     Indication: CARDIAC FAILURE
     Dosage: PO
     Route: 048
     Dates: start: 20040407
  4. PROSCAR [Concomitant]
  5. ACETAMINOPHEN AND CODEINE PHOSPHATE [Concomitant]
  6. ASPIRIN [Concomitant]
  7. BISOPROLOL FUMARATE [Concomitant]
  8. FUROSEMIDE [Concomitant]
  9. ZOLPIDEM TARTRATE [Concomitant]

REACTIONS (10)
  - BLOOD BILIRUBIN INCREASED [None]
  - BLOOD CHLORIDE INCREASED [None]
  - BLOOD CREATININE INCREASED [None]
  - BLOOD POTASSIUM INCREASED [None]
  - BLOOD UREA INCREASED [None]
  - EOSINOPHIL COUNT INCREASED [None]
  - GASTROINTESTINAL HAEMORRHAGE [None]
  - INFECTED SKIN ULCER [None]
  - MYELODYSPLASTIC SYNDROME [None]
  - VITAMIN B12 INCREASED [None]
